FAERS Safety Report 4363777-X (Version None)
Quarter: 2004Q2

REPORT INFORMATION
  Report Type: 
  Country: None (occurrence: None)
  Receive Date: 20040521
  Receipt Date: 20040505
  Transmission Date: 20050107
  Serious: No
  Sender: FDA-Public Use
  Company Number: RENA-10958

PATIENT
  Age: 81 Year
  Sex: Male
  Weight: 84 kg

DRUGS (5)
  1. RENAGEL [Suspect]
     Indication: HYPERPHOSPHATAEMIA
     Dosage: 4.8 G DAILY PO
     Route: 048
     Dates: start: 20010220, end: 20021201
  2. LEVOTHYROXINE SODIUM [Concomitant]
  3. MOPRAL [Concomitant]
  4. GAVISCON [Concomitant]
  5. KAYEXALATE [Concomitant]

REACTIONS (6)
  - DIFFICULTY IN WALKING [None]
  - DRUG INTERACTION [None]
  - HYPERPARATHYROIDISM SECONDARY [None]
  - HYPOTHYROIDISM [None]
  - NERVOUS SYSTEM DISORDER [None]
  - PARATHYROIDECTOMY [None]
